FAERS Safety Report 6171858-3 (Version None)
Quarter: 2009Q2

REPORT INFORMATION
  Report Type: 
  Country: None (occurrence: None)
  Receive Date: 20090429
  Receipt Date: 20090421
  Transmission Date: 20091009
  Serious: Yes (Hospitalization)
  Sender: FDA-Public Use
  Company Number: CA-JNJFOC-20090101946

PATIENT
  Sex: Female
  Weight: 80.2 kg

DRUGS (3)
  1. REMICADE [Suspect]
     Dosage: REPORTED AS A TOTAL OF 36 INFUSIONS
     Route: 042
     Dates: end: 20081001
  2. REMICADE [Suspect]
     Route: 042
     Dates: end: 20081001
  3. REMICADE [Suspect]
     Indication: RHEUMATOID ARTHRITIS
     Route: 042
     Dates: end: 20081001

REACTIONS (5)
  - CHEST PAIN [None]
  - CYSTITIS [None]
  - FALL [None]
  - IMPETIGO [None]
  - PELVIC FRACTURE [None]
